FAERS Safety Report 20363404 (Version 1)
Quarter: 2022Q1

REPORT INFORMATION
  Report Type: Spontaneous
  Country: CN (occurrence: None)
  Receive Date: 20220121
  Receipt Date: 20220121
  Transmission Date: 20220424
  Serious: Yes (Other)
  Sender: FDA-Public Use
  Company Number: 2022A030626

PATIENT
  Age: 31797 Day
  Sex: Male
  Weight: 56 kg

DRUGS (3)
  1. OSIMERTINIB MESYLATE [Suspect]
     Active Substance: OSIMERTINIB MESYLATE
     Indication: Drug therapy
     Route: 048
     Dates: start: 20201118, end: 20211206
  2. OSIMERTINIB MESYLATE [Suspect]
     Active Substance: OSIMERTINIB MESYLATE
     Indication: Drug therapy
     Route: 048
     Dates: start: 20211213
  3. OSIMERTINIB MESYLATE [Suspect]
     Active Substance: OSIMERTINIB MESYLATE
     Indication: Drug therapy
     Route: 048
     Dates: start: 20211220

REACTIONS (6)
  - Condition aggravated [Unknown]
  - Gingival bleeding [Unknown]
  - Decreased appetite [Unknown]
  - Mental disorder [Unknown]
  - Asthenia [Unknown]
  - Mouth ulceration [Recovering/Resolving]

NARRATIVE: CASE EVENT DATE: 20211227
